FAERS Safety Report 14156829 (Version 3)
Quarter: 2017Q4

REPORT INFORMATION
  Report Type: Report from Study
  Country: None (occurrence: CH)
  Receive Date: 20171103
  Receipt Date: 20171221
  Transmission Date: 20180321
  Serious: Yes (Hospitalization)
  Sender: FDA-Public Use
  Company Number: CH-ABBVIE-17K-151-2151294-00

PATIENT
  Age: 76 Year
  Sex: Male

DRUGS (1)
  1. DUODOPA [Suspect]
     Active Substance: CARBIDOPA\LEVODOPA
     Indication: PARKINSON^S DISEASE
     Dosage: MORNING DOSE: 9ML?CONTINUOUS DOSE DAY: 1.7ML/H?EXTRA DOSE: 1.5ML, 16HR THERAPY?16H THERAPY
     Route: 050
     Dates: start: 20130305

REACTIONS (5)
  - Drug dose omission [Unknown]
  - Device deployment issue [Unknown]
  - Wrong technique in device usage process [Unknown]
  - General physical health deterioration [Recovered/Resolved]
  - Device kink [Recovered/Resolved]

NARRATIVE: CASE EVENT DATE: 2017
